FAERS Safety Report 7249830-1 (Version None)
Quarter: 2011Q1

REPORT INFORMATION
  Report Type: 
  Country: None (occurrence: None)
  Receive Date: 20110128
  Receipt Date: 20100416
  Transmission Date: 20110831
  Serious: No
  Sender: FDA-Public Use
  Company Number: A0859640A

PATIENT

DRUGS (2)
  1. NO CONCURRENT MEDICATIONS [Concomitant]
  2. WELLBUTRIN XL [Suspect]
     Route: 065

REACTIONS (1)
  - DRUG SCREEN POSITIVE [None]
